FAERS Safety Report 5677249-3 (Version None)
Quarter: 2008Q1

REPORT INFORMATION
  Report Type: 
  Country: None (occurrence: None)
  Receive Date: 20080321
  Receipt Date: 20080321
  Transmission Date: 20080703
  Serious: Yes (Life-Threatening)
  Sender: FDA-Public Use
  Company Number: None

PATIENT
  Age: 53 Year
  Sex: Male
  Weight: 102.0593 kg

DRUGS (1)
  1. BYETTA [Suspect]
     Indication: TYPE 2 DIABETES MELLITUS
     Dosage: 10MCG 2X DAILY IM
     Route: 030
     Dates: start: 20070404, end: 20070610

REACTIONS (8)
  - ABDOMINAL PAIN UPPER [None]
  - EARLY SATIETY [None]
  - IMPAIRED WORK ABILITY [None]
  - METASTASES TO LYMPH NODES [None]
  - METASTASES TO PERITONEUM [None]
  - MUSCULOSKELETAL CHEST PAIN [None]
  - PANCREATIC CARCINOMA METASTATIC [None]
  - SLEEP DISORDER [None]
